FAERS Safety Report 5154271-7 (Version None)
Quarter: 2006Q4

REPORT INFORMATION
  Report Type: 
  Country: None (occurrence: None)
  Receive Date: 20061120
  Receipt Date: 20061117
  Transmission Date: 20070319
  Serious: Yes (Death, Life-Threatening, Other)
  Sender: FDA-Public Use
  Company Number: IN-NOVOPROD-258622

PATIENT

DRUGS (7)
  1. NOVOSEVEN [Suspect]
     Indication: POST PROCEDURAL HAEMORRHAGE
     Dosage: UNK, SINGLE
     Route: 042
     Dates: start: 20061115, end: 20061115
  2. MAGNAMYCIN [Concomitant]
     Dosage: 2 G, QD
     Route: 042
     Dates: start: 20061115
  3. OFLOXACIN [Concomitant]
     Dosage: 200 MG, QD
     Route: 042
     Dates: start: 20061115
  4. PANTOPRAZOLE SODIUM [Concomitant]
     Dosage: 40 MG, QD
     Route: 042
     Dates: start: 20061115
  5. ADRENALINE                         /00003901/ [Concomitant]
     Dosage: 0-16 ER/KG/MIN
     Route: 042
     Dates: start: 20061115
  6. NORADRENALINE [Concomitant]
     Dosage: 0-1 ER/KG/MIN
     Route: 042
     Dates: start: 20061116
  7. DOPAMINE HCL IN 5% DEXTROSE [Concomitant]
     Dosage: ER/KG/MIN
     Route: 042
     Dates: start: 20061116

REACTIONS (1)
  - INTESTINAL ISCHAEMIA [None]
